FAERS Safety Report 25178726 (Version 2)
Quarter: 2025Q2

REPORT INFORMATION
  Report Type: Spontaneous
  Country: US (occurrence: US)
  Receive Date: 20250409
  Receipt Date: 20250516
  Transmission Date: 20250716
  Serious: No
  Sender: MYLAN
  Company Number: US-MYLANLABS-2025M1029280

PATIENT
  Sex: Female

DRUGS (68)
  1. LIPITOR [Suspect]
     Active Substance: ATORVASTATIN CALCIUM
     Indication: Product used for unknown indication
  2. LIPITOR [Suspect]
     Active Substance: ATORVASTATIN CALCIUM
     Route: 065
  3. LIPITOR [Suspect]
     Active Substance: ATORVASTATIN CALCIUM
     Route: 065
  4. LIPITOR [Suspect]
     Active Substance: ATORVASTATIN CALCIUM
  5. LINZESS [Concomitant]
     Active Substance: LINACLOTIDE
  6. LINZESS [Concomitant]
     Active Substance: LINACLOTIDE
     Route: 065
  7. LINZESS [Concomitant]
     Active Substance: LINACLOTIDE
     Route: 065
  8. LINZESS [Concomitant]
     Active Substance: LINACLOTIDE
  9. ISOSORBIDE MONONITRATE [Concomitant]
     Active Substance: ISOSORBIDE MONONITRATE
  10. ISOSORBIDE MONONITRATE [Concomitant]
     Active Substance: ISOSORBIDE MONONITRATE
     Route: 065
  11. ISOSORBIDE MONONITRATE [Concomitant]
     Active Substance: ISOSORBIDE MONONITRATE
     Route: 065
  12. ISOSORBIDE MONONITRATE [Concomitant]
     Active Substance: ISOSORBIDE MONONITRATE
  13. AVAPRO [Concomitant]
     Active Substance: IRBESARTAN
  14. AVAPRO [Concomitant]
     Active Substance: IRBESARTAN
     Route: 065
  15. AVAPRO [Concomitant]
     Active Substance: IRBESARTAN
     Route: 065
  16. AVAPRO [Concomitant]
     Active Substance: IRBESARTAN
  17. ASPIRIN [Concomitant]
     Active Substance: ASPIRIN
  18. ASPIRIN [Concomitant]
     Active Substance: ASPIRIN
     Route: 065
  19. ASPIRIN [Concomitant]
     Active Substance: ASPIRIN
     Route: 065
  20. ASPIRIN [Concomitant]
     Active Substance: ASPIRIN
  21. TRULICITY [Concomitant]
     Active Substance: DULAGLUTIDE
  22. TRULICITY [Concomitant]
     Active Substance: DULAGLUTIDE
     Route: 065
  23. TRULICITY [Concomitant]
     Active Substance: DULAGLUTIDE
     Route: 065
  24. TRULICITY [Concomitant]
     Active Substance: DULAGLUTIDE
  25. RANEXA [Concomitant]
     Active Substance: RANOLAZINE
  26. RANEXA [Concomitant]
     Active Substance: RANOLAZINE
     Route: 065
  27. RANEXA [Concomitant]
     Active Substance: RANOLAZINE
     Route: 065
  28. RANEXA [Concomitant]
     Active Substance: RANOLAZINE
  29. NEXIUM [Concomitant]
     Active Substance: ESOMEPRAZOLE MAGNESIUM
  30. NEXIUM [Concomitant]
     Active Substance: ESOMEPRAZOLE MAGNESIUM
     Route: 065
  31. NEXIUM [Concomitant]
     Active Substance: ESOMEPRAZOLE MAGNESIUM
     Route: 065
  32. NEXIUM [Concomitant]
     Active Substance: ESOMEPRAZOLE MAGNESIUM
  33. ZETIA [Concomitant]
     Active Substance: EZETIMIBE
  34. ZETIA [Concomitant]
     Active Substance: EZETIMIBE
     Route: 065
  35. ZETIA [Concomitant]
     Active Substance: EZETIMIBE
     Route: 065
  36. ZETIA [Concomitant]
     Active Substance: EZETIMIBE
  37. SYNTHROID [Concomitant]
     Active Substance: LEVOTHYROXINE SODIUM
  38. SYNTHROID [Concomitant]
     Active Substance: LEVOTHYROXINE SODIUM
     Route: 065
  39. SYNTHROID [Concomitant]
     Active Substance: LEVOTHYROXINE SODIUM
     Route: 065
  40. SYNTHROID [Concomitant]
     Active Substance: LEVOTHYROXINE SODIUM
  41. TOPROL XL [Concomitant]
     Active Substance: METOPROLOL SUCCINATE
  42. TOPROL XL [Concomitant]
     Active Substance: METOPROLOL SUCCINATE
     Route: 065
  43. TOPROL XL [Concomitant]
     Active Substance: METOPROLOL SUCCINATE
     Route: 065
  44. TOPROL XL [Concomitant]
     Active Substance: METOPROLOL SUCCINATE
  45. CRESTOR [Concomitant]
     Active Substance: ROSUVASTATIN CALCIUM
  46. CRESTOR [Concomitant]
     Active Substance: ROSUVASTATIN CALCIUM
     Route: 065
  47. CRESTOR [Concomitant]
     Active Substance: ROSUVASTATIN CALCIUM
     Route: 065
  48. CRESTOR [Concomitant]
     Active Substance: ROSUVASTATIN CALCIUM
  49. OXYGEN [Concomitant]
     Active Substance: OXYGEN
  50. OXYGEN [Concomitant]
     Active Substance: OXYGEN
     Route: 065
  51. OXYGEN [Concomitant]
     Active Substance: OXYGEN
     Route: 065
  52. OXYGEN [Concomitant]
     Active Substance: OXYGEN
  53. BENZONATATE [Concomitant]
     Active Substance: BENZONATATE
  54. BENZONATATE [Concomitant]
     Active Substance: BENZONATATE
     Route: 065
  55. BENZONATATE [Concomitant]
     Active Substance: BENZONATATE
     Route: 065
  56. BENZONATATE [Concomitant]
     Active Substance: BENZONATATE
  57. FAMOTIDINE [Concomitant]
     Active Substance: FAMOTIDINE
  58. FAMOTIDINE [Concomitant]
     Active Substance: FAMOTIDINE
     Route: 065
  59. FAMOTIDINE [Concomitant]
     Active Substance: FAMOTIDINE
     Route: 065
  60. FAMOTIDINE [Concomitant]
     Active Substance: FAMOTIDINE
  61. NITROGLYCERIN [Concomitant]
     Active Substance: NITROGLYCERIN
  62. NITROGLYCERIN [Concomitant]
     Active Substance: NITROGLYCERIN
     Route: 065
  63. NITROGLYCERIN [Concomitant]
     Active Substance: NITROGLYCERIN
     Route: 065
  64. NITROGLYCERIN [Concomitant]
     Active Substance: NITROGLYCERIN
  65. PREDNISONE [Concomitant]
     Active Substance: PREDNISONE
  66. PREDNISONE [Concomitant]
     Active Substance: PREDNISONE
     Route: 065
  67. PREDNISONE [Concomitant]
     Active Substance: PREDNISONE
     Route: 065
  68. PREDNISONE [Concomitant]
     Active Substance: PREDNISONE

REACTIONS (1)
  - Hepatic enzyme increased [Unknown]
